FAERS Safety Report 7761511-4 (Version None)
Quarter: 2011Q3

REPORT INFORMATION
  Report Type: 
  Country: None (occurrence: None)
  Receive Date: 20110920
  Receipt Date: 20110915
  Transmission Date: 20111222
  Serious: Yes (Other)
  Sender: FDA-Public Use
  Company Number: BR-ABBOTT-11P-020-0855492-00

PATIENT
  Sex: Female
  Weight: 80 kg

DRUGS (4)
  1. METHOTREXATE [Concomitant]
     Indication: OSTEOARTHRITIS
     Route: 048
  2. RISPERIDONE [Concomitant]
     Indication: HYPERTENSION
     Route: 048
  3. HUMIRA [Suspect]
     Indication: RHEUMATOID ARTHRITIS
     Route: 058
     Dates: start: 20090227
  4. CHLOROQUINE [Concomitant]
     Indication: OSTEOARTHRITIS
     Route: 048

REACTIONS (1)
  - HIATUS HERNIA [None]
